FAERS Safety Report 24023936 (Version 1)
Quarter: 2024Q2

REPORT INFORMATION
  Report Type: Report from Study
  Country: US (occurrence: US)
  Receive Date: 20240627
  Receipt Date: 20240627
  Transmission Date: 20240715
  Serious: No
  Sender: FDA-Public Use
  Company Number: US-ROCHE-3575455

PATIENT
  Age: 81 Year
  Sex: Female

DRUGS (2)
  1. VABYSMO [Suspect]
     Active Substance: FARICIMAB\FARICIMAB-SVOA
     Indication: Neovascular age-related macular degeneration
     Route: 065
     Dates: start: 20240514
  2. VABYSMO [Suspect]
     Active Substance: FARICIMAB\FARICIMAB-SVOA
     Indication: Choroidal neovascularisation

REACTIONS (7)
  - Injection site discomfort [Unknown]
  - Somnolence [Unknown]
  - Pain [Unknown]
  - Foreign body sensation in eyes [Not Recovered/Not Resolved]
  - Rash macular [Unknown]
  - Photopsia [Recovered/Resolved]
  - Eye discharge [Not Recovered/Not Resolved]

NARRATIVE: CASE EVENT DATE: 20240514
